FAERS Safety Report 9304061 (Version 1)
Quarter: 2013Q2

REPORT INFORMATION
  Report Type: Spontaneous
  Country: ZA (occurrence: ZA)
  Receive Date: 20130522
  Receipt Date: 20130522
  Transmission Date: 20140414
  Serious: Yes (Other)
  Sender: FDA-Public Use
  Company Number: ZA-ROXANE LABORATORIES, INC.-2013-RO-00819RO

PATIENT
  Age: 56 Year
  Sex: Female

DRUGS (4)
  1. AZATHIOPRINE [Suspect]
     Indication: UVEITIS
     Dosage: 100 MG
  2. TRIAMCINOLONE ACETONIDE [Suspect]
     Indication: MACULAR OEDEMA
     Dosage: 4 MG
     Dates: start: 201102, end: 201102
  3. PREDNISOLONE [Suspect]
     Indication: UVEITIS
     Dosage: 10 MG
     Route: 048
  4. CORTICOSTEROIDS [Concomitant]
     Indication: UVEITIS
     Route: 061

REACTIONS (3)
  - Cytomegalovirus chorioretinitis [Recovered/Resolved]
  - Macular oedema [Recovered/Resolved]
  - Retinal detachment [Unknown]
